FAERS Safety Report 19076787 (Version 1)
Quarter: 2021Q1

REPORT INFORMATION
  Report Type: Spontaneous
  Country: US (occurrence: US)
  Receive Date: 20210330
  Receipt Date: 20210330
  Transmission Date: 20210420
  Serious: Yes (Hospitalization)
  Sender: FDA-Public Use
  Company Number: None

PATIENT
  Age: 21 Year
  Sex: Female

DRUGS (16)
  1. SODIUM CHL 7% [Suspect]
     Active Substance: SODIUM CHLORIDE
     Indication: CYSTIC FIBROSIS
     Dosage: ?          OTHER DOSE:4 ML (1 VIAL);?
     Route: 055
     Dates: start: 20140711
  2. MEPHYTON [Concomitant]
     Active Substance: PHYTONADIONE
  3. FLUTICASONE CREAM [Concomitant]
  4. CREON [Concomitant]
     Active Substance: PANCRELIPASE AMYLASE\PANCRELIPASE LIPASE\PANCRELIPASE PROTEASE
  5. PULMOZYME [Suspect]
     Active Substance: DORNASE ALFA
     Indication: CYSTIC FIBROSIS
     Dosage: ?          OTHER DOSE:1 VIAL;?
     Route: 055
     Dates: start: 20140711
  6. FLOVENT [Concomitant]
     Active Substance: FLUTICASONE PROPIONATE
  7. VITAMIN E [Concomitant]
     Active Substance: .ALPHA.-TOCOPHEROL
  8. CLONAZEPAM. [Concomitant]
     Active Substance: CLONAZEPAM
  9. AQUADEKS [Concomitant]
     Active Substance: MINERALS\VITAMINS
  10. VIT D [Concomitant]
     Active Substance: VITAMIN D NOS
  11. ALBUTEROL HFA [Concomitant]
     Active Substance: ALBUTEROL SULFATE
  12. URSODIOL. [Concomitant]
     Active Substance: URSODIOL
  13. OMEPRAZOLE. [Concomitant]
     Active Substance: OMEPRAZOLE
  14. TOBRAMYCIN NEB SIN [Concomitant]
  15. LAMICTAL [Concomitant]
     Active Substance: LAMOTRIGINE
  16. VITAMIN A [Concomitant]
     Active Substance: VITAMIN A

REACTIONS (1)
  - Haemoptysis [None]
